FAERS Safety Report 14682547 (Version 4)
Quarter: 2018Q3

REPORT INFORMATION
  Report Type: Report from Study
  Country: US (occurrence: US)
  Receive Date: 20180327
  Receipt Date: 20180904
  Transmission Date: 20181010
  Serious: Yes (Hospitalization)
  Sender: FDA-Public Use
  Company Number: US-BIOGEN-2018BI00546837

PATIENT
  Age: 37 Year
  Sex: Female

DRUGS (9)
  1. TECFIDERA [Suspect]
     Active Substance: DIMETHYL FUMARATE
     Indication: MULTIPLE SCLEROSIS
     Route: 048
     Dates: start: 20180310, end: 20180316
  2. TECFIDERA [Suspect]
     Active Substance: DIMETHYL FUMARATE
     Route: 048
     Dates: start: 20180317
  3. TECFIDERA [Suspect]
     Active Substance: DIMETHYL FUMARATE
     Dosage: 120 MG IN THE MORNING AND 240 MG IN THE EVENING FOR 7 DAYS
     Route: 048
     Dates: start: 201803, end: 201803
  4. TECFIDERA [Suspect]
     Active Substance: DIMETHYL FUMARATE
     Dosage: STARTING DOSE
     Route: 048
     Dates: start: 20180310, end: 20180323
  5. TECFIDERA [Suspect]
     Active Substance: DIMETHYL FUMARATE
     Dosage: MAINTENANCE DOSE (240MG BID THEREAFTER)
     Route: 048
     Dates: start: 20180310
  6. TECFIDERA [Suspect]
     Active Substance: DIMETHYL FUMARATE
     Dosage: 120 MG IN THE MORNING AND 240 MG IN THE EVENING FOR 7 DAYS
     Route: 048
     Dates: start: 201803, end: 201803
  7. TECFIDERA [Suspect]
     Active Substance: DIMETHYL FUMARATE
     Dosage: MAINTENANCE DOSE
     Route: 048
     Dates: start: 20180324
  8. TECFIDERA [Suspect]
     Active Substance: DIMETHYL FUMARATE
     Dosage: STARTING DOSE (DAILY FOR 7 DAYS)
     Route: 048
     Dates: start: 201803, end: 201803
  9. TECFIDERA [Suspect]
     Active Substance: DIMETHYL FUMARATE
     Dosage: 120 MG BID FOR 7 DAYS
     Route: 048
     Dates: start: 201803, end: 201803

REACTIONS (12)
  - Weight increased [Unknown]
  - Night sweats [Unknown]
  - Nausea [Not Recovered/Not Resolved]
  - Vomiting [Not Recovered/Not Resolved]
  - Abdominal distension [Unknown]
  - Pollakiuria [Unknown]
  - Flushing [Recovered/Resolved]
  - Urinary incontinence [Unknown]
  - Prescribed underdose [Recovered/Resolved]
  - Diarrhoea [Not Recovered/Not Resolved]
  - Flatulence [Unknown]
  - Hemianaesthesia [Unknown]

NARRATIVE: CASE EVENT DATE: 20180501
